FAERS Safety Report 11728795 (Version 1)
Quarter: 2015Q4

REPORT INFORMATION
  Report Type: Spontaneous
  Country: US (occurrence: US)
  Receive Date: 20151110
  Receipt Date: 20151110
  Transmission Date: 20160304
  Serious: No
  Sender: FDA-Public Use
  Company Number: US-ELI_LILLY_AND_COMPANY-US201109007486

PATIENT
  Sex: Male

DRUGS (1)
  1. FORTEO [Suspect]
     Active Substance: TERIPARATIDE
     Indication: OSTEOPOROSIS

REACTIONS (7)
  - Accident [Unknown]
  - Feeling abnormal [Unknown]
  - Visual impairment [Unknown]
  - Vision blurred [Unknown]
  - Eye infection [Unknown]
  - Arthralgia [Unknown]
  - Anaemia [Unknown]
